FAERS Safety Report 4344885-6 (Version None)
Quarter: 2004Q2

REPORT INFORMATION
  Report Type: 
  Country: None (occurrence: None)
  Receive Date: 20040420
  Receipt Date: 20040408
  Transmission Date: 20050107
  Serious: Yes (Hospitalization)
  Sender: FDA-Public Use
  Company Number: 163-20785-04030457

PATIENT
  Age: 67 Year
  Sex: Male

DRUGS (31)
  1. THALOMID [Suspect]
     Indication: MULTIPLE MYELOMA
     Dosage: 200 MG, QD, ORAL
     Route: 048
     Dates: start: 20020401, end: 20030801
  2. THALOMID [Suspect]
     Indication: MULTIPLE MYELOMA
     Dosage: 200 MG, QD, ORAL
     Route: 048
     Dates: start: 20030823, end: 20030828
  3. DEXAMETHASONE [Suspect]
     Indication: MULTIPLE MYELOMA
     Dosage: 40 MG, DAYS 1-4, ORAL
     Route: 048
     Dates: start: 20030823, end: 20030828
  4. DEXAMETHASONE [Suspect]
     Indication: MULTIPLE MYELOMA
     Dosage: 40 MG, DAYS 1-4, ORAL
     Route: 048
     Dates: start: 20020401
  5. CISPLATIN [Suspect]
     Indication: MULTIPLE MYELOMA
     Dosage: 19 MG, DAYS 1-4, ORAL
     Route: 048
     Dates: start: 20030918
  6. ADRIAMYCIN (DOXORUBICIN) [Suspect]
     Indication: MULTIPLE MYELOMA
     Dosage: 76 MG, DAYS 1-4, ORAL
     Route: 048
     Dates: start: 20030918
  7. CYCLOPHOSPHAMIDE [Suspect]
     Indication: MULTIPLE MYELOMA
     Dosage: 744 MG, DAYS 1-4,ORAL
     Route: 048
     Dates: start: 20030918
  8. ETOPOSIDE [Suspect]
     Indication: MULTIPLE MYELOMA
     Dosage: 74 MG, DAYS 1-4,ORAL
     Route: 048
     Dates: start: 20030918
  9. MELPHALAN (MELPHALAN) (INJECTION) [Suspect]
     Indication: MULTIPLE MYELOMA
     Dosage: SEE IMAGE,INTRAVENOUS
     Route: 042
     Dates: start: 20030918
  10. MELPHALAN (MELPHALAN) (INJECTION) [Suspect]
     Indication: MULTIPLE MYELOMA
     Dosage: SEE IMAGE,INTRAVENOUS
     Route: 042
     Dates: start: 20040212
  11. BIAXIN [Concomitant]
  12. IMODIUM [Concomitant]
  13. FLAGYL [Concomitant]
  14. ACYCLOVIR [Concomitant]
  15. DIGOXIN [Concomitant]
  16. MEGACE [Concomitant]
  17. ZOLOFT [Concomitant]
  18. KYTRIL (GRANISETRON) (TABLETS) [Concomitant]
  19. DIFLUCAN [Concomitant]
  20. NEXIUM [Concomitant]
  21. PEPCID [Concomitant]
  22. PROCRIT (ERYTHROPOIETIN) [Concomitant]
  23. FLOMAX [Concomitant]
  24. PROTONIX [Concomitant]
  25. CALCIUM CARBONATE (CALCIUM CARBONATE) [Concomitant]
  26. DIGOXIN [Concomitant]
  27. AUGMENTIN [Concomitant]
  28. CARDIZEM CD [Concomitant]
  29. OXYBUTYNIN [Concomitant]
  30. HYDROMORPHONE HCL [Concomitant]
  31. HEPARIN FLUSH (INJECTION) [Concomitant]

REACTIONS (42)
  - ASTHENIA [None]
  - ATRIAL FIBRILLATION [None]
  - BENIGN PROSTATIC HYPERPLASIA [None]
  - BLOOD CALCIUM INCREASED [None]
  - BLOOD LACTATE DEHYDROGENASE INCREASED [None]
  - BLOOD PHOSPHORUS DECREASED [None]
  - BLOOD UREA DECREASED [None]
  - C-REACTIVE PROTEIN INCREASED [None]
  - CLOSTRIDIUM COLITIS [None]
  - COMPLICATIONS OF TRANSPLANT SURGERY [None]
  - CONDITION AGGRAVATED [None]
  - CONFUSIONAL STATE [None]
  - DIARRHOEA [None]
  - DISEASE PROGRESSION [None]
  - DYSARTHRIA [None]
  - DYSURIA [None]
  - FATIGUE [None]
  - GAMMA-GLUTAMYLTRANSFERASE INCREASED [None]
  - GRANULOCYTE COUNT INCREASED [None]
  - HAEMATOCRIT DECREASED [None]
  - HAEMOGLOBIN DECREASED [None]
  - INTERNATIONAL NORMALISED RATIO INCREASED [None]
  - NAUSEA [None]
  - OEDEMA PERIPHERAL [None]
  - PARAESTHESIA [None]
  - PITTING OEDEMA [None]
  - PLATELET COUNT DECREASED [None]
  - PNEUMONIA [None]
  - PROTEIN TOTAL DECREASED [None]
  - PROTEIN URINE [None]
  - PROTHROMBIN TIME PROLONGED [None]
  - PYREXIA [None]
  - RASH ERYTHEMATOUS [None]
  - RED BLOOD CELL COUNT DECREASED [None]
  - SPINAL COMPRESSION FRACTURE [None]
  - STAPHYLOCOCCAL BACTERAEMIA [None]
  - STAPHYLOCOCCAL INFECTION [None]
  - TACHYCARDIA [None]
  - THROMBOCYTOPENIA [None]
  - URINE OUTPUT DECREASED [None]
  - VOMITING [None]
  - WHITE BLOOD CELL COUNT DECREASED [None]
